FAERS Safety Report 4293634-9 (Version None)
Quarter: 2004Q1

REPORT INFORMATION
  Report Type: 
  Country: None (occurrence: None)
  Receive Date: 20040210
  Receipt Date: 20010130
  Transmission Date: 20041129
  Serious: Yes (Hospitalization, Other)
  Sender: FDA-Public Use
  Company Number: HQWYE757630JAN04

PATIENT
  Age: 15 Month
  Sex: Male

DRUGS (1)
  1. CHILDREN'S ADVIL [Suspect]
     Indication: PYREXIA
     Dosage: 85 MG, 4X PER 1 DAY ORAL
     Route: 048
     Dates: start: 20010413, end: 20030415

REACTIONS (3)
  - CONDITION AGGRAVATED [None]
  - EAR INFECTION [None]
  - MASTOIDITIS [None]
